FAERS Safety Report 6084737-7 (Version None)
Quarter: 2009Q1

REPORT INFORMATION
  Report Type: 
  Country: None (occurrence: None)
  Receive Date: 20090219
  Receipt Date: 20090211
  Transmission Date: 20090719
  Serious: Yes (Other)
  Sender: FDA-Public Use
  Company Number: US-ALLERGAN-0901486US

PATIENT
  Sex: Female

DRUGS (2)
  1. RESTASIS [Suspect]
     Indication: DRY EYE
     Dosage: 1 GTT, Q12H
     Route: 047
     Dates: start: 20090204, end: 20090205
  2. SOOTHE [Concomitant]
     Indication: DRY EYE
     Dosage: 1 GTT, PRN
     Route: 047

REACTIONS (6)
  - CORNEAL DISORDER [None]
  - ERYTHEMA [None]
  - FACIAL PAIN [None]
  - HYPERSENSITIVITY [None]
  - SWELLING FACE [None]
  - VISUAL ACUITY REDUCED [None]
